FAERS Safety Report 14964353 (Version 1)
Quarter: 2018Q2

REPORT INFORMATION
  Report Type: Spontaneous
  Country: BR (occurrence: BR)
  Receive Date: 20180601
  Receipt Date: 20180601
  Transmission Date: 20180711
  Serious: Yes (Life-Threatening, Hospitalization, Other)
  Sender: FDA-Public Use
  Company Number: BR-BRISTOL-MYERS SQUIBB COMPANY-BMS-2018-050713

PATIENT
  Sex: Male

DRUGS (1)
  1. NIVOLUMAB [Suspect]
     Active Substance: NIVOLUMAB
     Indication: METASTATIC MALIGNANT MELANOMA
     Route: 042

REACTIONS (7)
  - Shock haemorrhagic [Unknown]
  - Rectal haemorrhage [Unknown]
  - Fall [Unknown]
  - Microangiopathy [Unknown]
  - Upper gastrointestinal haemorrhage [Unknown]
  - Autoimmune colitis [Recovering/Resolving]
  - Urinary tract infection pseudomonal [Unknown]

NARRATIVE: CASE EVENT DATE: 20180502
